FAERS Safety Report 16881328 (Version 1)
Quarter: 2019Q4

REPORT INFORMATION
  Report Type: Spontaneous
  Country: IT (occurrence: IT)
  Receive Date: 20191003
  Receipt Date: 20191003
  Transmission Date: 20200122
  Serious: Yes (Other)
  Sender: FDA-Public Use
  Company Number: IT-US-PROVELL PHARMACEUTICALS LLC-E2B_90071056

PATIENT
  Age: 36 Year
  Sex: Female

DRUGS (1)
  1. EUTIROX [Suspect]
     Active Substance: LEVOTHYROXINE SODIUM
     Indication: PRODUCT USED FOR UNKNOWN INDICATION
     Route: 048
     Dates: start: 20190310, end: 20190310

REACTIONS (3)
  - Psychomotor hyperactivity [Unknown]
  - Alcohol abuse [Unknown]
  - Substance abuse [Unknown]

NARRATIVE: CASE EVENT DATE: 20190310
